FAERS Safety Report 7089051-9 (Version None)
Quarter: 2010Q4

REPORT INFORMATION
  Report Type: 
  Country: None (occurrence: None)
  Receive Date: 20101108
  Receipt Date: 20101029
  Transmission Date: 20110411
  Serious: Yes (Hospitalization)
  Sender: FDA-Public Use
  Company Number: B0652062A

PATIENT
  Sex: Female
  Weight: 60 kg

DRUGS (5)
  1. VALTREX [Suspect]
     Indication: HERPES ZOSTER
     Dosage: 1000MG PER DAY
     Route: 048
     Dates: start: 20100416, end: 20100419
  2. VALTREX [Suspect]
     Dosage: 3000MG PER DAY
     Route: 048
     Dates: start: 20100420, end: 20100424
  3. CALONAL [Concomitant]
     Indication: ANALGESIC THERAPY
     Dosage: 1200MG PER DAY
     Route: 048
     Dates: start: 20100416
  4. LOXONIN [Concomitant]
     Indication: ANALGESIC THERAPY
     Dosage: 180MG PER DAY
     Route: 048
     Dates: start: 20100420, end: 20100424
  5. VIDARABINE [Concomitant]
     Route: 061
     Dates: start: 20100416, end: 20100420

REACTIONS (4)
  - CARDIAC FAILURE CHRONIC [None]
  - DECREASED APPETITE [None]
  - DIZZINESS [None]
  - MALAISE [None]
